FAERS Safety Report 9611936 (Version 1)
Quarter: 2013Q4

REPORT INFORMATION
  Report Type: Spontaneous
  Country: LB (occurrence: LB)
  Receive Date: 20131010
  Receipt Date: 20131010
  Transmission Date: 20140711
  Serious: Yes (Death, Hospitalization)
  Sender: FDA-Public Use
  Company Number: LB-JNJFOC-20131002685

PATIENT
  Age: 59 Year
  Sex: Male

DRUGS (5)
  1. REMICADE [Suspect]
     Indication: COLITIS ULCERATIVE
     Route: 042
  2. AZATHIOPRINE [Suspect]
     Indication: PRODUCT USED FOR UNKNOWN INDICATION
     Route: 065
  3. PREDNISONE [Suspect]
     Indication: PRODUCT USED FOR UNKNOWN INDICATION
     Route: 065
  4. OMEPRAZOLE [Concomitant]
     Route: 065
  5. ALFUZOSIN [Concomitant]
     Route: 065

REACTIONS (4)
  - Meningitis listeria [Fatal]
  - Normochromic normocytic anaemia [Unknown]
  - Hyperphosphataemia [Unknown]
  - Hyponatraemia [Unknown]
